FAERS Safety Report 15934545 (Version 1)
Quarter: 2019Q1

REPORT INFORMATION
  Report Type: Spontaneous
  Country: FR (occurrence: FR)
  Receive Date: 20190207
  Receipt Date: 20190207
  Transmission Date: 20190417
  Serious: Yes (Hospitalization)
  Sender: FDA-Public Use
  Company Number: FR-MISSION PHARMACAL COMPANY-2062306

PATIENT
  Age: 84 Year
  Sex: Female

DRUGS (8)
  1. PARACETAMOL [Concomitant]
     Active Substance: ACETAMINOPHEN
  2. TELFAST (FEXOFENADINE) [Concomitant]
     Active Substance: FEXOFENADINE\FEXOFENADINE HYDROCHLORIDE
  3. POLARAMINE (DEXCHORPHENIRAMIN) [Concomitant]
  4. BINOSTO [Suspect]
     Active Substance: ALENDRONATE SODIUM
     Route: 048
  5. COLOCYNTHIS (HOMEOPATHIC MEDICINE) [Concomitant]
  6. VITAMIN D [Concomitant]
     Active Substance: CHOLECALCIFEROL
  7. HYPERICUM (HOMEOPATHIC MEDICINE) [Concomitant]
  8. THEALOSE [Concomitant]

REACTIONS (2)
  - Eosinophilia [Unknown]
  - Pruritus [Unknown]
